FAERS Safety Report 24565078 (Version 1)
Quarter: 2024Q4

REPORT INFORMATION
  Report Type: Spontaneous
  Country: FR (occurrence: FR)
  Receive Date: 20241030
  Receipt Date: 20241030
  Transmission Date: 20250115
  Serious: Yes (Hospitalization, Other)
  Sender: AUROBINDO
  Company Number: FR-AFSSAPS-PC2024000832

PATIENT
  Age: 56 Year
  Sex: Male
  Weight: 59 kg

DRUGS (9)
  1. ACYCLOVIR [Suspect]
     Active Substance: ACYCLOVIR
     Indication: Herpes zoster meningoencephalitis
     Dosage: 610 MILLIGRAM
     Route: 042
     Dates: start: 20240916, end: 20240916
  2. ACYCLOVIR [Suspect]
     Active Substance: ACYCLOVIR
     Dosage: 1800 MILLIGRAM
     Route: 042
     Dates: start: 20240916, end: 20240917
  3. ACYCLOVIR [Suspect]
     Active Substance: ACYCLOVIR
     Dosage: 300 MILLIGRAM, ONCE A DAY
     Route: 042
     Dates: start: 20240917, end: 20240929
  4. KEPPRA [Suspect]
     Active Substance: LEVETIRACETAM
     Indication: Epilepsy
     Dosage: 3000 MILLIGRAM
     Route: 042
     Dates: start: 20240919
  5. KEPPRA [Suspect]
     Active Substance: LEVETIRACETAM
     Dosage: 500 MILLIGRAM
     Route: 042
     Dates: start: 20240919
  6. KEPPRA [Suspect]
     Active Substance: LEVETIRACETAM
     Dosage: 1500 MILLIGRAM, ONCE A DAY
     Route: 042
     Dates: start: 20240919
  7. KEPPRA [Suspect]
     Active Substance: LEVETIRACETAM
     Dosage: 1000 MILLIGRAM, ONCE A DAY
     Route: 042
     Dates: start: 20240928
  8. ATORVASTATIN [Suspect]
     Active Substance: ATORVASTATIN
     Indication: Dilated cardiomyopathy
     Dosage: 10 MILLIGRAM, ONCE A DAY
     Route: 048
  9. ATORVASTATIN [Suspect]
     Active Substance: ATORVASTATIN
     Dosage: 10 MILLIGRAM, ONCE A DAY
     Route: 048
     Dates: start: 20240922

REACTIONS (2)
  - Cholestasis [Recovering/Resolving]
  - Jaundice [Recovering/Resolving]

NARRATIVE: CASE EVENT DATE: 20240930
